FAERS Safety Report 12904422 (Version 4)
Quarter: 2016Q4

REPORT INFORMATION
  Report Type: Spontaneous
  Country: CA (occurrence: CA)
  Receive Date: 20161102
  Receipt Date: 20161123
  Transmission Date: 20170207
  Serious: Yes (Other)
  Sender: FDA-Public Use
  Company Number: CA-JNJFOC-20161024833

PATIENT
  Sex: Male

DRUGS (2)
  1. DARZALEX [Suspect]
     Active Substance: DARATUMUMAB
     Indication: PLASMA CELL MYELOMA
  2. DARZALEX [Suspect]
     Active Substance: DARATUMUMAB
     Indication: PLASMA CELL MYELOMA
     Dates: start: 201607

REACTIONS (5)
  - Haemoglobin decreased [Unknown]
  - Light chain analysis increased [Unknown]
  - Light chain analysis decreased [Unknown]
  - Drug ineffective [Unknown]
  - General physical health deterioration [Unknown]
